FAERS Safety Report 8232891-0 (Version None)
Quarter: 2012Q1

REPORT INFORMATION
  Report Type: 
  Country: None (occurrence: None)
  Receive Date: 20120324
  Receipt Date: 20120314
  Transmission Date: 20120608
  Serious: Yes (Other)
  Sender: FDA-Public Use
  Company Number: GB-AMGEN-GBRSP2012017396

PATIENT
  Age: 65 Year
  Sex: Male

DRUGS (4)
  1. ALLOPURINOL [Concomitant]
     Dosage: 300 MG, 1X/DAY
  2. ENBREL [Suspect]
     Indication: RHEUMATOID ARTHRITIS
     Dosage: 50 MG, WEEKLY
     Route: 058
  3. LANSOPRAZOLE [Concomitant]
     Dosage: 30 MG, 1X/DAY
  4. ENBREL [Suspect]
     Indication: ANKYLOSING SPONDYLITIS

REACTIONS (2)
  - DEAFNESS BILATERAL [None]
  - NASOPHARYNGITIS [None]
